FAERS Safety Report 6537018-9 (Version None)
Quarter: 2010Q1

REPORT INFORMATION
  Report Type: 
  Country: None (occurrence: None)
  Receive Date: 20100108
  Receipt Date: 20100106
  Transmission Date: 20100710
  Serious: Yes (Hospitalization)
  Sender: FDA-Public Use
  Company Number: KADN20100002

PATIENT
  Sex: Female

DRUGS (1)
  1. KADIAN [Suspect]
     Dosage: DRUG USED FOR UNKNOWN INDICATION

REACTIONS (1)
  - NONSPECIFIC REACTION [None]
